FAERS Safety Report 13608130 (Version 1)
Quarter: 2017Q2

REPORT INFORMATION
  Report Type: Spontaneous
  Country: KR (occurrence: KR)
  Receive Date: 20170602
  Receipt Date: 20170602
  Transmission Date: 20170830
  Serious: Yes (Hospitalization)
  Sender: FDA-Public Use
  Company Number: KR-FTV20160527-01

PATIENT
  Sex: Female

DRUGS (1)
  1. FACTIVE [Suspect]
     Active Substance: GEMIFLOXACIN MESYLATE
     Indication: CHRONIC RESPIRATORY DISEASE
     Route: 048
     Dates: start: 20160429, end: 20160503

REACTIONS (2)
  - Rash [Unknown]
  - Rash generalised [None]

NARRATIVE: CASE EVENT DATE: 20160504
